FAERS Safety Report 10424755 (Version 2)
Quarter: 2014Q3

REPORT INFORMATION
  Report Type: Report from Study
  Country: BR (occurrence: BR)
  Receive Date: 20140902
  Receipt Date: 20140905
  Transmission Date: 20150326
  Serious: Yes (Hospitalization)
  Sender: FDA-Public Use
  Company Number: BR-US-EMD SERONO, INC.-7316986

PATIENT
  Sex: Female

DRUGS (2)
  1. REBIF [Suspect]
     Active Substance: INTERFERON BETA-1A
     Indication: SECONDARY PROGRESSIVE MULTIPLE SCLEROSIS
     Dates: start: 200707
  2. REBIF [Suspect]
     Active Substance: INTERFERON BETA-1A
     Dates: start: 20100101, end: 201406

REACTIONS (5)
  - Immune system disorder [Unknown]
  - Off label use [Unknown]
  - Diverticulitis [Unknown]
  - Disease progression [Unknown]
  - Herpes zoster [Unknown]
